FAERS Safety Report 24680140 (Version 1)
Quarter: 2024Q4

REPORT INFORMATION
  Report Type: Spontaneous
  Country: US (occurrence: US)
  Receive Date: 20241129
  Receipt Date: 20241129
  Transmission Date: 20250114
  Serious: Yes (Hospitalization)
  Sender: ASTELLAS
  Company Number: US-ASTELLAS-2024-AER-020762

PATIENT
  Age: 70 Year
  Sex: Male

DRUGS (4)
  1. XTANDI [Suspect]
     Active Substance: ENZALUTAMIDE
     Indication: Prostate cancer
     Route: 050
     Dates: end: 20241117
  2. XTANDI [Suspect]
     Active Substance: ENZALUTAMIDE
     Route: 050
     Dates: start: 20241120
  3. ALLEGRA [Concomitant]
     Active Substance: FEXOFENADINE HYDROCHLORIDE
     Indication: Seasonal allergy
     Dosage: HE TAKES 4 DOSES OF ALLEGRA BUT MOST DAYS HE TAKES 90MG OF ALLEGRA
     Route: 065
  4. ASPIRIN [Concomitant]
     Active Substance: ASPIRIN
     Indication: Product used for unknown indication
     Dosage: 2 ASPIRIN A DAY
     Route: 065

REACTIONS (5)
  - Fall [Unknown]
  - Renal disorder [Recovering/Resolving]
  - Back pain [Recovering/Resolving]
  - Prostatic specific antigen increased [Unknown]
  - Product outer packaging issue [Unknown]

NARRATIVE: CASE EVENT DATE: 20230907
